FAERS Safety Report 4306949-2 (Version None)
Quarter: 2004Q1

REPORT INFORMATION
  Report Type: 
  Country: None (occurrence: None)
  Receive Date: 20040225
  Receipt Date: 20040205
  Transmission Date: 20041129
  Serious: Yes (Other)
  Sender: FDA-Public Use
  Company Number: B0323360A

PATIENT

DRUGS (3)
  1. ALKERAN [Suspect]
     Indication: MULTIPLE MYELOMA
     Dosage: 4 MG/M2 / CYCLIC / ORAL
     Route: 048
  2. PREDNISONE [Suspect]
     Indication: MULTIPLE MYELOMA
     Dosage: 40 MG/M2, CYCLIC
  3. THALIDOMIDE (THALIDOMIDE) [Suspect]
     Dosage: SUBCUTANEOUS
     Route: 058

REACTIONS (1)
  - PULMONARY EMBOLISM [None]
